FAERS Safety Report 9797362 (Version 1)
Quarter: 2014Q1

REPORT INFORMATION
  Report Type: Spontaneous
  Country: US (occurrence: US)
  Receive Date: 20140106
  Receipt Date: 20140106
  Transmission Date: 20141002
  Serious: No
  Sender: FDA-Public Use
  Company Number: US-BIOGENIDEC-2014BI000424

PATIENT
  Age: 60 Year
  Sex: Male

DRUGS (2)
  1. TYSABRI [Suspect]
     Indication: MULTIPLE SCLEROSIS
     Route: 042
     Dates: start: 20041222, end: 20050106
  2. TYSABRI [Suspect]
     Indication: MULTIPLE SCLEROSIS
     Route: 042
     Dates: start: 20131204

REACTIONS (4)
  - Rash generalised [Recovered/Resolved]
  - Urticaria [Recovered/Resolved]
  - Flushing [Recovered/Resolved]
  - Chest discomfort [Recovered/Resolved]
